FAERS Safety Report 6053749-1 (Version None)
Quarter: 2009Q1

REPORT INFORMATION
  Report Type: 
  Country: None (occurrence: None)
  Receive Date: 20090127
  Receipt Date: 20080926
  Transmission Date: 20090719
  Serious: No
  Sender: FDA-Public Use
  Company Number: US-TEVA-178080USA

PATIENT
  Age: 16 Year
  Sex: Female

DRUGS (1)
  1. COPAXONE [Suspect]
     Indication: MULTIPLE SCLEROSIS
     Route: 058

REACTIONS (5)
  - ALOPECIA [None]
  - DRY SKIN [None]
  - PYREXIA [None]
  - RASH [None]
  - SKIN EXFOLIATION [None]
